FAERS Safety Report 12309936 (Version 1)
Quarter: 2016Q2

REPORT INFORMATION
  Report Type: Spontaneous
  Country: US (occurrence: None)
  Receive Date: 20160426
  Receipt Date: 20160426
  Transmission Date: 20160815
  Serious: Yes (Other)
  Sender: FDA-Public Use
  Company Number: None

PATIENT
  Age: 53 Year
  Sex: Male
  Weight: 79.38 kg

DRUGS (1)
  1. ARIPIPRAZOLE, GENERIC ABILIFY, 10 MG AUROBINDO PHARMA LTD [Suspect]
     Active Substance: ARIPIPRAZOLE
     Indication: BIPOLAR DISORDER
     Dosage: 45 TABLET(S) ONCE A DAY TAKEN BY MOUTH
     Route: 048
     Dates: start: 20160417, end: 20160422

REACTIONS (6)
  - Product colour issue [None]
  - Nausea [None]
  - Product physical issue [None]
  - Product substitution issue [None]
  - Malaise [None]
  - Somnolence [None]

NARRATIVE: CASE EVENT DATE: 20160417
